FAERS Safety Report 8224843-1 (Version None)
Quarter: 2012Q1

REPORT INFORMATION
  Report Type: 
  Country: None (occurrence: None)
  Receive Date: 20120320
  Receipt Date: 20120320
  Transmission Date: 20120608
  Serious: Yes (Other)
  Sender: FDA-Public Use
  Company Number: None

PATIENT
  Age: 23 Year
  Sex: Female

DRUGS (1)
  1. DERMA-SMOOTHE/FS [Suspect]
     Indication: SEBORRHOEIC DERMATITIS
     Dosage: 0.01% ONCE DAILY
     Dates: start: 20100713

REACTIONS (3)
  - SKIN IRRITATION [None]
  - PRODUCT SUBSTITUTION ISSUE [None]
  - ALOPECIA [None]
